FAERS Safety Report 6169653-4 (Version None)
Quarter: 2009Q2

REPORT INFORMATION
  Report Type: 
  Country: None (occurrence: None)
  Receive Date: 20090428
  Receipt Date: 20090421
  Transmission Date: 20091009
  Serious: Yes (Hospitalization)
  Sender: FDA-Public Use
  Company Number: US-WYE-H08134709

PATIENT
  Age: 61 Year
  Sex: Male
  Weight: 93.7 kg

DRUGS (17)
  1. TORISEL [Suspect]
     Indication: RENAL CELL CARCINOMA
     Dosage: 25 MG ON DAYS 1, 8, 15 AND 22 EVERY 28 DAYS
     Route: 042
     Dates: start: 20081215, end: 20081229
  2. TORISEL [Suspect]
     Dosage: 25 MG ON DAYS 1, 8, 15 AND 22 EVERY 28 DAYS; TOTAL DOSE ADMINISTERED THIS COURSE: 75 MG
     Route: 042
     Dates: start: 20081231, end: 20081231
  3. PROCHLORPERAZINE [Concomitant]
  4. FERROUS SULFATE TAB [Concomitant]
  5. ASCORBIC ACID [Concomitant]
  6. ZOCOR [Concomitant]
  7. ATENOLOL [Concomitant]
  8. GLUCOTROL [Concomitant]
  9. ASPIRIN [Concomitant]
  10. BACTRIM [Concomitant]
  11. METAMUCIL [Concomitant]
  12. CITALOPRAM HYDROBROMIDE [Concomitant]
  13. HYDROCORTISONE [Concomitant]
  14. SENNA [Concomitant]
  15. NITROGLYCERIN COMP. /NET/ [Concomitant]
  16. BEVACIZUMAB [Concomitant]
     Indication: RENAL CELL CARCINOMA
     Dosage: 10 MG/KG ON DAYS 1 AND 15 EVERY 28 DAYS
     Route: 042
     Dates: start: 20081215, end: 20081229
  17. BEVACIZUMAB [Concomitant]
     Dosage: 10 MG/KG ON DAYS 1 AND 15 EVERY 28 DAYS; TOTAL DOSE ADMINISTERED THIS COURSE: 1880 MG
     Route: 042
     Dates: start: 20081231, end: 20081231

REACTIONS (3)
  - DEHYDRATION [None]
  - DIARRHOEA [None]
  - HYPOKALAEMIA [None]
